FAERS Safety Report 10891440 (Version 6)
Quarter: 2015Q2

REPORT INFORMATION
  Report Type: Spontaneous
  Country: US (occurrence: US)
  Receive Date: 20150306
  Receipt Date: 20150619
  Transmission Date: 20150821
  Serious: Yes (Hospitalization, Disabling, Other)
  Sender: FDA-Public Use
  Company Number: US-009507513-98050013

PATIENT
  Sex: Female
  Weight: 86.17 kg

DRUGS (7)
  1. ALENDRONATE SODIUM. [Suspect]
     Active Substance: ALENDRONATE SODIUM
     Indication: OSTEOPOROSIS
     Dosage: 70 MG, UNK
     Route: 048
     Dates: start: 2008, end: 2010
  2. ALENDRONATE SODIUM. [Suspect]
     Active Substance: ALENDRONATE SODIUM
     Indication: OSTEOPOROSIS
     Dosage: 70 MG, UNK
     Route: 048
     Dates: start: 20080504, end: 20100619
  3. FOSAMAX [Suspect]
     Active Substance: ALENDRONATE SODIUM
     Dosage: 5 MG, QD
     Route: 048
     Dates: start: 20020105
  4. ALENDRONATE SODIUM. [Suspect]
     Active Substance: ALENDRONATE SODIUM
     Indication: OSTEOPENIA
  5. ALENDRONATE SODIUM. [Suspect]
     Active Substance: ALENDRONATE SODIUM
     Indication: OSTEOPENIA
  6. FOSAMAX [Suspect]
     Active Substance: ALENDRONATE SODIUM
     Indication: OSTEOPOROSIS
     Dosage: 10 MG, QD
     Route: 048
     Dates: start: 19980423, end: 2008
  7. FOSAMAX [Suspect]
     Active Substance: ALENDRONATE SODIUM
     Indication: OSTEOPENIA
     Dosage: 70 MG, QW
     Route: 048
     Dates: start: 20010523, end: 20080211

REACTIONS (39)
  - Spondylolisthesis [Unknown]
  - Femur fracture [Recovering/Resolving]
  - Visual acuity reduced [Unknown]
  - Spinal fusion surgery [Recovering/Resolving]
  - Osteonecrosis [Unknown]
  - Foot fracture [Unknown]
  - Hypertension [Unknown]
  - Radiculopathy [Unknown]
  - Arthroscopy [Unknown]
  - Aspartate aminotransferase increased [Unknown]
  - Road traffic accident [Unknown]
  - Lumbar radiculopathy [Unknown]
  - Cellulitis [Unknown]
  - Sciatica [Unknown]
  - Joint dislocation [Unknown]
  - Gastric ulcer [Unknown]
  - Spinal column stenosis [Unknown]
  - Contusion [Unknown]
  - Fracture nonunion [Recovering/Resolving]
  - Abdominal operation [Unknown]
  - Tonsillectomy [Unknown]
  - Lyme disease [Unknown]
  - Spinal osteoarthritis [Unknown]
  - Spinal fusion surgery [Unknown]
  - Spinal laminectomy [Unknown]
  - Spinal laminectomy [Recovering/Resolving]
  - Back injury [Unknown]
  - Bone disorder [Unknown]
  - Hyperlipidaemia [Unknown]
  - Coronary artery disease [Unknown]
  - Femur fracture [Recovering/Resolving]
  - Meniscus injury [Unknown]
  - Osteoarthritis [Unknown]
  - Arthropod bite [Unknown]
  - Mean cell volume increased [Unknown]
  - Intramedullary rod insertion [Unknown]
  - Head injury [Unknown]
  - Bone disorder [Unknown]
  - Diarrhoea [Unknown]

NARRATIVE: CASE EVENT DATE: 199804
